FAERS Safety Report 10037544 (Version 1)
Quarter: 2014Q1

REPORT INFORMATION
  Report Type: Spontaneous
  Country: US (occurrence: US)
  Receive Date: 20140326
  Receipt Date: 20140326
  Transmission Date: 20141002
  Serious: Yes (Other)
  Sender: FDA-Public Use
  Company Number: US-ASTELLAS-2014US002936

PATIENT
  Age: 79 Year
  Sex: Male
  Weight: 75 kg

DRUGS (4)
  1. MYRBETRIQ [Suspect]
     Indication: PRODUCT USED FOR UNKNOWN INDICATION
     Dosage: 25 MG, UID/QD
     Route: 048
     Dates: start: 20140306
  2. VERAPAMIL [Concomitant]
     Indication: HYPERTENSION
     Dosage: 1 DF, UID/QD
     Route: 048
  3. LEVOXYL [Concomitant]
     Indication: HYPOTHYROIDISM
     Dosage: 1 DF, UID/QD
     Route: 048
  4. LOVASTATIN [Concomitant]
     Indication: BLOOD CHOLESTEROL INCREASED
     Dosage: 1 DF, UID/QD
     Route: 048

REACTIONS (1)
  - Epistaxis [Unknown]
